FAERS Safety Report 14767015 (Version 1)
Quarter: 2018Q2

REPORT INFORMATION
  Report Type: Report from Study
  Country: None (occurrence: CO)
  Receive Date: 20180417
  Receipt Date: 20180417
  Transmission Date: 20180711
  Serious: Yes (Other)
  Sender: FDA-Public Use
  Company Number: CO-ABBVIE-18K-036-2324127-00

PATIENT
  Age: 30 Year
  Sex: Male

DRUGS (1)
  1. HUMIRA [Suspect]
     Active Substance: ADALIMUMAB
     Indication: ANKYLOSING SPONDYLITIS
     Route: 058
     Dates: start: 20170718

REACTIONS (4)
  - Influenza [Recovering/Resolving]
  - Seizure [Recovering/Resolving]
  - Oral candidiasis [Recovering/Resolving]
  - Oropharyngeal plaque [Recovering/Resolving]

NARRATIVE: CASE EVENT DATE: 20180408
